FAERS Safety Report 20907755 (Version 3)
Quarter: 2022Q2

REPORT INFORMATION
  Report Type: Report from Study
  Country: US (occurrence: US)
  Receive Date: 20220602
  Receipt Date: 20220620
  Transmission Date: 20220720
  Serious: No
  Sender: FDA-Public Use
  Company Number: US-NOVARTISTESTPH-NVSC2022US126240

PATIENT
  Sex: Female

DRUGS (1)
  1. ENTRESTO [Suspect]
     Active Substance: SACUBITRIL\VALSARTAN
     Indication: Product used for unknown indication
     Dosage: 1 DOSAGE FORM, BID
     Route: 048
     Dates: start: 2021

REACTIONS (6)
  - Oedema peripheral [Not Recovered/Not Resolved]
  - Palpitations [Recovering/Resolving]
  - Poor quality sleep [Unknown]
  - Fear [Unknown]
  - Feeling abnormal [Unknown]
  - Drug hypersensitivity [Unknown]
